FAERS Safety Report 21622973 (Version 1)
Quarter: 2022Q4

REPORT INFORMATION
  Report Type: Spontaneous
  Country: US (occurrence: US)
  Receive Date: 20221121
  Receipt Date: 20221121
  Transmission Date: 20230112
  Serious: Yes (Other)
  Sender: FDA-Public Use
  Company Number: US-BAYER-2022A157165

PATIENT
  Age: 58 Year
  Sex: Female

DRUGS (4)
  1. CLARITIN [Suspect]
     Active Substance: LORATADINE
     Dosage: UNK
     Route: 048
  2. LENVIMA [Concomitant]
     Active Substance: LENVATINIB
     Indication: Endometrial cancer
     Dosage: 4 MG, QD
     Route: 048
     Dates: start: 20220929
  3. LISINOPRIL [Concomitant]
     Active Substance: LISINOPRIL
     Route: 048
  4. ALLEGRA ALLERGY [Concomitant]
     Active Substance: FEXOFENADINE HYDROCHLORIDE
     Dosage: UNK

REACTIONS (11)
  - Bone pain [Not Recovered/Not Resolved]
  - Hypertension [Not Recovered/Not Resolved]
  - Neuropathy peripheral [Not Recovered/Not Resolved]
  - Cough [Not Recovered/Not Resolved]
  - Influenza like illness [Recovering/Resolving]
  - Fatigue [Not Recovered/Not Resolved]
  - Feeling abnormal [Not Recovered/Not Resolved]
  - Hypertrophy of tongue papillae [Not Recovered/Not Resolved]
  - Migraine [Not Recovered/Not Resolved]
  - Restlessness [Not Recovered/Not Resolved]
  - Nausea [Not Recovered/Not Resolved]
